FAERS Safety Report 4366277-6 (Version None)
Quarter: 2004Q2

REPORT INFORMATION
  Report Type: 
  Country: None (occurrence: None)
  Receive Date: 20040524
  Receipt Date: 20040205
  Transmission Date: 20050107
  Serious: No
  Sender: FDA-Public Use
  Company Number: SU-2004-002115

PATIENT
  Age: 77 Year
  Sex: Female

DRUGS (4)
  1. BENICAR [Suspect]
     Indication: HYPERTENSION
     Dosage: 20 MG QD PO
     Route: 048
     Dates: start: 20040101, end: 20040101
  2. BENICAR [Suspect]
     Indication: HYPERTENSION
     Dosage: 10 MG QD PO
     Route: 048
     Dates: start: 20040101
  3. COVERA-HS [Concomitant]
  4. UNSPECIFIED DIURETIC [Concomitant]

REACTIONS (2)
  - ASTHENIA [None]
  - DEPRESSED MOOD [None]
